FAERS Safety Report 9191342 (Version 2)
Quarter: 2013Q2

REPORT INFORMATION
  Report Type: Spontaneous
  Country: DK (occurrence: DK)
  Receive Date: 20130326
  Receipt Date: 20130531
  Transmission Date: 20140414
  Serious: Yes (Other)
  Sender: FDA-Public Use
  Company Number: DK-PFIZER INC-2013097383

PATIENT
  Age: 37 Year
  Sex: Female
  Weight: 67 kg

DRUGS (2)
  1. MISOPROSTOL [Suspect]
     Indication: LABOUR INDUCTION
     Dosage: 4 OR 5 TABLETS
     Route: 067
     Dates: start: 20090814, end: 20090815
  2. PETHIDINE ^DAK^ [Concomitant]
     Indication: ANALGESIC THERAPY
     Dosage: 75 MG, SINGLE
     Dates: start: 20090815, end: 20090815

REACTIONS (4)
  - Off label use [Recovered/Resolved]
  - Uterine hypertonus [Recovered/Resolved]
  - Precipitate labour [Recovered/Resolved]
  - Depressed level of consciousness [Recovered/Resolved]
